FAERS Safety Report 7512399-8 (Version None)
Quarter: 2011Q2

REPORT INFORMATION
  Report Type: 
  Country: None (occurrence: None)
  Receive Date: 20110531
  Receipt Date: 20110519
  Transmission Date: 20111010
  Serious: Yes (Hospitalization, Disabling, Other)
  Sender: FDA-Public Use
  Company Number: US-ROCHE-760623

PATIENT
  Sex: Male
  Weight: 68 kg

DRUGS (1)
  1. ACCUTANE [Suspect]
     Indication: ACNE
     Route: 065
     Dates: start: 19951013, end: 20060801

REACTIONS (8)
  - FRACTURE [None]
  - INFLAMMATORY BOWEL DISEASE [None]
  - ILEAL PERFORATION [None]
  - CROHN'S DISEASE [None]
  - DRUG HYPERSENSITIVITY [None]
  - SMALL INTESTINAL OBSTRUCTION [None]
  - COLITIS ULCERATIVE [None]
  - DEPRESSION [None]
